FAERS Safety Report 23207645 (Version 4)
Quarter: 2024Q1

REPORT INFORMATION
  Report Type: Report from Study
  Country: US (occurrence: US)
  Receive Date: 20231120
  Receipt Date: 20240221
  Transmission Date: 20240409
  Serious: Yes (Hospitalization)
  Sender: FDA-Public Use
  Company Number: US-BEIGENE-BGN-2023-011364

PATIENT

DRUGS (3)
  1. BRUKINSA [Suspect]
     Active Substance: ZANUBRUTINIB
     Indication: Chronic lymphocytic leukaemia
     Dosage: 160 MILLIGRAM, BID
     Route: 048
     Dates: start: 20230728, end: 20230928
  2. BRUKINSA [Suspect]
     Active Substance: ZANUBRUTINIB
     Dosage: 160 MILLIGRAM, BID
     Route: 048
     Dates: start: 20230728
  3. BRUKINSA [Suspect]
     Active Substance: ZANUBRUTINIB
     Dosage: 160 MILLIGRAM, BID
     Route: 048
     Dates: start: 20230728

REACTIONS (10)
  - Pericardial effusion [Recovering/Resolving]
  - Atrial fibrillation [Not Recovered/Not Resolved]
  - Pneumonia [Unknown]
  - Respiratory rate increased [Unknown]
  - Pyrexia [Unknown]
  - Disorientation [Unknown]
  - Pleural effusion [Unknown]
  - Flank pain [Not Recovered/Not Resolved]
  - Eating disorder [Not Recovered/Not Resolved]
  - COVID-19 [Recovering/Resolving]
